FAERS Safety Report 7558184-2 (Version None)
Quarter: 2011Q2

REPORT INFORMATION
  Report Type: 
  Country: None (occurrence: None)
  Receive Date: 20110620
  Receipt Date: 20110610
  Transmission Date: 20111010
  Serious: Yes (Death)
  Sender: FDA-Public Use
  Company Number: JP-CEPHALON-2011002265

PATIENT
  Age: 53 Year
  Sex: Male

DRUGS (1)
  1. BENDAMUSTINE HCL [Suspect]
     Route: 042
     Dates: start: 20110414

REACTIONS (2)
  - DISEASE PROGRESSION [None]
  - NEUTROPHIL COUNT DECREASED [None]
